FAERS Safety Report 13579800 (Version 1)
Quarter: 2017Q2

REPORT INFORMATION
  Report Type: Other
  Country: JP (occurrence: JP)
  Receive Date: 20170525
  Receipt Date: 20170525
  Transmission Date: 20170830
  Serious: Yes (Other)
  Sender: FDA-Public Use
  Company Number: JP-SHIONOGI, INC-2017000377

PATIENT
  Age: 59 Year
  Sex: Male

DRUGS (3)
  1. PAZUCROSS [Suspect]
     Active Substance: PAZUFLOXACIN MESILATE
     Route: 065
  2. FINIBAX [Suspect]
     Active Substance: DORIPENEM MONOHYDRATE
     Dosage: UNK
     Route: 065
     Dates: start: 201506, end: 201506
  3. CALONAL [Suspect]
     Active Substance: ACETAMINOPHEN
     Route: 065

REACTIONS (1)
  - Erythema multiforme [Unknown]
